FAERS Safety Report 6155063-2 (Version None)
Quarter: 2009Q2

REPORT INFORMATION
  Report Type: 
  Country: None (occurrence: None)
  Receive Date: 20090410
  Receipt Date: 20090401
  Transmission Date: 20091009
  Serious: Yes (Hospitalization)
  Sender: FDA-Public Use
  Company Number: GXKR2009GB04230

PATIENT
  Age: 71 Year
  Sex: Female

DRUGS (5)
  1. DILTIAZEM [Suspect]
     Indication: HYPERTENSION
     Dosage: ORAL
     Route: 048
  2. ENALAPRIL MALEATE [Suspect]
     Indication: HYPERTENSION
     Dosage: ORAL
     Route: 048
  3. CLONIDINE HYDROCHLORIDE [Suspect]
     Indication: HYPERTENSION
     Dosage: ORAL
     Route: 048
  4. PIROXICAM [Suspect]
     Indication: MYALGIA
  5. AULIN (NIMESULIDE) [Suspect]
     Indication: MYALGIA

REACTIONS (7)
  - DIALYSIS [None]
  - GENERAL PHYSICAL HEALTH DETERIORATION [None]
  - HYPERKALAEMIA [None]
  - MYOPATHY [None]
  - NAUSEA [None]
  - OLIGURIA [None]
  - VOMITING [None]
